FAERS Safety Report 9779794 (Version 1)
Quarter: 2013Q4

REPORT INFORMATION
  Report Type: Spontaneous
  Country: JP (occurrence: JP)
  Receive Date: 20131223
  Receipt Date: 20131223
  Transmission Date: 20140711
  Serious: Yes (Hospitalization)
  Sender: FDA-Public Use
  Company Number: JP-GLAXOSMITHKLINE-B0951540A

PATIENT
  Age: 83 Year
  Sex: Female
  Weight: 41 kg

DRUGS (10)
  1. PAXIL [Suspect]
     Indication: DEPRESSION
     Dosage: 12.5MG PER DAY
     Route: 048
     Dates: start: 20131106, end: 20131112
  2. DOGMATYL [Suspect]
     Indication: PRODUCT USED FOR UNKNOWN INDICATION
     Route: 048
  3. BUFFERIN [Concomitant]
     Indication: MYOCARDIAL INFARCTION
     Dosage: 81MG PER DAY
     Route: 048
     Dates: end: 20131112
  4. CONIEL [Concomitant]
     Indication: HYPERTENSION
     Dosage: 4MG PER DAY
     Route: 048
     Dates: end: 20131112
  5. ISOSORBIDE MONONITRATE [Concomitant]
     Indication: ANGINA PECTORIS
     Dosage: 40MG TWICE PER DAY
     Route: 048
     Dates: end: 20131112
  6. FUROSEMIDE [Concomitant]
     Indication: CARDIAC FAILURE CHRONIC
     Dosage: 20MG PER DAY
     Route: 048
     Dates: end: 20131112
  7. WYPAX [Concomitant]
     Indication: ANXIETY DISORDER
     Dosage: .5MG PER DAY
     Route: 048
     Dates: end: 20131112
  8. EDIROL [Concomitant]
     Indication: OSTEOPOROSIS
     Dosage: .75MG PER DAY
     Route: 048
     Dates: end: 20130410
  9. SIGMART [Concomitant]
     Indication: ANGINA PECTORIS
     Dosage: 15MG THREE TIMES PER DAY
     Route: 048
     Dates: start: 20130914, end: 20131112
  10. LOXONIN [Concomitant]
     Indication: BACK PAIN
     Dosage: 60MG PER DAY
     Route: 048
     Dates: start: 20130410, end: 20130924

REACTIONS (7)
  - Sedation [Recovered/Resolved]
  - Bradyphrenia [Recovered/Resolved]
  - Somnolence [Recovered/Resolved]
  - Blood pressure decreased [Recovered/Resolved]
  - Decreased appetite [Recovered/Resolved]
  - Listless [Recovered/Resolved]
  - Hypoaesthesia [Recovered/Resolved]
